FAERS Safety Report 9115981 (Version 1)
Quarter: 2013Q1

REPORT INFORMATION
  Report Type: Spontaneous
  Country: US (occurrence: US)
  Receive Date: 20130225
  Receipt Date: 20130225
  Transmission Date: 20140127
  Serious: Yes (Other)
  Sender: FDA-Public Use
  Company Number: US-ELI_LILLY_AND_COMPANY-US201302007687

PATIENT
  Age: 69 Year
  Sex: Male

DRUGS (6)
  1. PROZAC [Suspect]
     Indication: DEPRESSION
     Dosage: 20 MG, QD
     Dates: end: 20130215
  2. PROZAC [Suspect]
     Dosage: 40 MG, QD
     Dates: start: 201208
  3. CYMBALTA [Suspect]
     Indication: DEPRESSION
     Dosage: 30 MG, QD
     Dates: start: 20130215
  4. LIPITOR [Concomitant]
     Indication: BLOOD CHOLESTEROL
  5. NORVASC [Concomitant]
     Indication: HYPERTENSION
     Dosage: 1 DF, UNKNOWN
  6. ECOTRIN [Concomitant]
     Dosage: 1 DF, QD

REACTIONS (5)
  - Renal cancer [Recovered/Resolved]
  - Prostate cancer [Recovered/Resolved]
  - Arthritis [Recovering/Resolving]
  - Pain in extremity [Recovering/Resolving]
  - Malaise [Recovered/Resolved]
